FAERS Safety Report 20350700 (Version 1)
Quarter: 2022Q1

REPORT INFORMATION
  Report Type: Spontaneous
  Country: US (occurrence: US)
  Receive Date: 20220119
  Receipt Date: 20220119
  Transmission Date: 20220423
  Serious: No
  Sender: FDA-Public Use
  Company Number: US-PFIZER INC-202101655121

PATIENT
  Age: 78 Year
  Sex: Female

DRUGS (5)
  1. VFEND [Suspect]
     Active Substance: VORICONAZOLE
     Indication: Aspergillus infection
     Dosage: 200 MG, 2X/DAY(TAKE 2 TABLETS BY MOUTH EVERY 12 HOURS FOR 28 DOSES-QTY OF 56)
     Route: 048
     Dates: start: 2021
  2. VFEND [Suspect]
     Active Substance: VORICONAZOLE
     Dosage: 400 MG, 2X/DAY (TAKE 2 TABLETS BY MOUTH EVERY 12 HOURS FOR 28 DAYS)
     Route: 048
     Dates: end: 20211128
  3. VFEND [Suspect]
     Active Substance: VORICONAZOLE
     Dosage: 400 MG, 2X/DAY (TWO 200MG TABLETS TWICE A DAY BY MOUTH)
     Route: 048
     Dates: start: 20211201, end: 20211227
  4. LEXAPRO [Concomitant]
     Active Substance: ESCITALOPRAM OXALATE
     Dosage: UNK
  5. SINGULAIR [Concomitant]
     Active Substance: MONTELUKAST SODIUM
     Indication: Hypersensitivity
     Dosage: UNK

REACTIONS (9)
  - Night sweats [Recovering/Resolving]
  - Fatigue [Recovering/Resolving]
  - Rash [Unknown]
  - Alopecia [Unknown]
  - Weight decreased [Unknown]
  - Rash morbilliform [Unknown]
  - Hyperhidrosis [Not Recovered/Not Resolved]
  - Infection [Unknown]
  - Pulmonary mass [Unknown]

NARRATIVE: CASE EVENT DATE: 20211201
